FAERS Safety Report 6786477-5 (Version None)
Quarter: 2010Q2

REPORT INFORMATION
  Report Type: 
  Country: None (occurrence: None)
  Receive Date: 20100623
  Receipt Date: 20100615
  Transmission Date: 20101027
  Serious: Yes (Other)
  Sender: FDA-Public Use
  Company Number: B0590723A

PATIENT
  Age: 46 Year
  Sex: Female

DRUGS (2)
  1. REQUIP [Suspect]
     Indication: PARKINSON'S DISEASE
     Route: 048
     Dates: start: 19970601, end: 20001101
  2. MODOPAR [Suspect]
     Indication: PARKINSON'S DISEASE
     Dosage: 125MG FIVE TIMES PER DAY
     Route: 048
     Dates: start: 19970601

REACTIONS (1)
  - SOMNOLENCE [None]
